FAERS Safety Report 8059885-2 (Version None)
Quarter: 2012Q1

REPORT INFORMATION
  Report Type: 
  Country: None (occurrence: None)
  Receive Date: 20120120
  Receipt Date: 20120110
  Transmission Date: 20120608
  Serious: Yes (Hospitalization)
  Sender: FDA-Public Use
  Company Number: US-JNJFOC-20110104200

PATIENT
  Age: 37 Year
  Sex: Female
  Weight: 76 kg

DRUGS (5)
  1. SEASONIQUE [Concomitant]
     Indication: ORAL CONTRACEPTION
  2. ACETAMINOPHEN [Suspect]
     Route: 065
  3. DAYQUIL [Suspect]
     Indication: NASOPHARYNGITIS
     Dates: start: 20101225
  4. ACETAMINOPHEN [Suspect]
     Indication: NASOPHARYNGITIS
     Route: 065
     Dates: start: 20110101, end: 20110103
  5. ADVIL COLD AND SINUS [Suspect]
     Indication: NASOPHARYNGITIS
     Dates: start: 20101225

REACTIONS (3)
  - ACCIDENTAL OVERDOSE [None]
  - HEPATIC FAILURE [None]
  - THROMBOCYTOPENIA [None]
